FAERS Safety Report 7499011-1 (Version None)
Quarter: 2011Q2

REPORT INFORMATION
  Report Type: 
  Country: None (occurrence: None)
  Receive Date: 20110524
  Receipt Date: 20110518
  Transmission Date: 20111010
  Serious: Yes (Life-Threatening, Hospitalization, Other)
  Sender: FDA-Public Use
  Company Number: DE-B.I. PHARMACEUTICALS,INC./RIDGEFIELD-2010-DE-01961DE

PATIENT
  Sex: Female
  Weight: 90 kg

DRUGS (8)
  1. AMIODARONE HCL [Suspect]
     Indication: ARRHYTHMIA
     Dosage: 200 MG
     Dates: end: 20100330
  2. PRADAXA [Suspect]
     Indication: KNEE ARTHROPLASTY
  3. PRADAXA [Suspect]
     Indication: HIP ARTHROPLASTY
  4. PRADAXA [Suspect]
     Indication: THROMBOSIS PROPHYLAXIS
     Dosage: 150 MG
     Dates: start: 20100325, end: 20100328
  5. VOLTAREN [Suspect]
     Indication: PROPHYLAXIS
     Dosage: 150 MG
     Dates: start: 20100326, end: 20100328
  6. DIOVAN [Concomitant]
     Indication: HYPERTENSION
     Dosage: 160 MG
     Dates: end: 20100330
  7. TORSEMIDE [Concomitant]
     Indication: HYPERTENSION
     Dosage: 10 MG
     Dates: end: 20100329
  8. SIMVASTATIN [Concomitant]
     Indication: BLOOD CHOLESTEROL INCREASED
     Dosage: 20 MG
     Dates: end: 20100330

REACTIONS (6)
  - INTESTINAL HAEMORRHAGE [None]
  - COLITIS [None]
  - GASTRITIS [None]
  - WOUND SECRETION [None]
  - GASTRIC ULCER [None]
  - RENAL FAILURE [None]
